FAERS Safety Report 4327714-6 (Version None)
Quarter: 2004Q1

REPORT INFORMATION
  Report Type: 
  Country: None (occurrence: None)
  Receive Date: 20040325
  Receipt Date: 20020807
  Transmission Date: 20041129
  Serious: Yes (Hospitalization)
  Sender: FDA-Public Use
  Company Number: 2002IC000255

PATIENT
  Age: 56 Year
  Sex: Male
  Weight: 79.2 kg

DRUGS (4)
  1. FLUOROURACIL [Suspect]
     Dosage: 850 MG; Q D 5 DAYS; INTRAVENOUS
     Route: 042
     Dates: start: 19990920, end: 19990924
  2. FOLINIC ACID (FOLINIC ACID) [Suspect]
     Dosage: 40 MG; QD 5 DAYS; INTRAVENOUS
     Route: 042
     Dates: start: 19990920, end: 19990924
  3. METOCLOPRAMIDE [Concomitant]
  4. ZANTAC [Concomitant]

REACTIONS (3)
  - MUCOSAL INFLAMMATION [None]
  - RASH ERYTHEMATOUS [None]
  - RASH MACULO-PAPULAR [None]
